FAERS Safety Report 6185199-1 (Version None)
Quarter: 2009Q2

REPORT INFORMATION
  Report Type: 
  Country: None (occurrence: None)
  Receive Date: 20090511
  Receipt Date: 20090501
  Transmission Date: 20091009
  Serious: Yes (Hospitalization)
  Sender: FDA-Public Use
  Company Number: US-BIOGENIDEC-2008BI026789

PATIENT
  Age: 59 Year
  Sex: Female

DRUGS (1)
  1. AVONEX [Suspect]
     Indication: MULTIPLE SCLEROSIS
     Route: 030
     Dates: start: 20080404, end: 20090223

REACTIONS (6)
  - BLOOD CORTISOL DECREASED [None]
  - FUNGAL SKIN INFECTION [None]
  - INFLUENZA LIKE ILLNESS [None]
  - INJECTION SITE HAEMATOMA [None]
  - MULTIPLE SCLEROSIS RELAPSE [None]
  - RASH PRURITIC [None]
